FAERS Safety Report 11942337 (Version 1)
Quarter: 2016Q1

REPORT INFORMATION
  Report Type: Report from Study
  Country: CN (occurrence: CN)
  Receive Date: 20160125
  Receipt Date: 20160125
  Transmission Date: 20160526
  Serious: Yes (Other)
  Sender: FDA-Public Use
  Company Number: CN-ROCHE-1696841

PATIENT

DRUGS (4)
  1. LEUCOVORIN. [Suspect]
     Active Substance: LEUCOVORIN
     Indication: COLORECTAL CANCER METASTATIC
     Route: 042
  2. OXALIPLATIN. [Suspect]
     Active Substance: OXALIPLATIN
     Indication: COLORECTAL CANCER METASTATIC
     Route: 013
  3. 5-FU [Suspect]
     Active Substance: FLUOROURACIL
     Indication: COLORECTAL CANCER METASTATIC
     Route: 013
  4. BEVACIZUMAB [Suspect]
     Active Substance: BEVACIZUMAB
     Indication: COLORECTAL CANCER METASTATIC
     Route: 013

REACTIONS (10)
  - Vomiting [Unknown]
  - Constipation [Unknown]
  - Bone marrow failure [Unknown]
  - Neuropathy peripheral [Unknown]
  - Cholecystitis [Unknown]
  - Nausea [Unknown]
  - Abdominal pain upper [Unknown]
  - Hepatic function abnormal [Unknown]
  - Pyrexia [Unknown]
  - Diarrhoea [Unknown]
